FAERS Safety Report 25127696 (Version 2)
Quarter: 2025Q3

REPORT INFORMATION
  Report Type: Spontaneous
  Country: JP (occurrence: JP)
  Receive Date: 20250327
  Receipt Date: 20250809
  Transmission Date: 20251020
  Serious: Yes (Hospitalization)
  Sender: UNITED THERAPEUTICS
  Company Number: JP-UNITED THERAPEUTICS-UNT-2024-041013

PATIENT
  Age: 4 Year
  Sex: Female
  Weight: 11.4 kg

DRUGS (26)
  1. UNITUXIN [Suspect]
     Active Substance: DINUTUXIMAB
     Indication: Neuroblastoma
     Route: 041
     Dates: start: 20241008, end: 20241011
  2. UNITUXIN [Suspect]
     Active Substance: DINUTUXIMAB
     Route: 041
     Dates: start: 20241112, end: 20241115
  3. FENTANYL [Concomitant]
     Active Substance: FENTANYL
     Indication: Pain
     Route: 041
     Dates: start: 20241008, end: 20241011
  4. FENTANYL [Concomitant]
     Active Substance: FENTANYL
     Route: 041
     Dates: start: 20241112, end: 20241115
  5. FILGRASTIM [Concomitant]
     Active Substance: FILGRASTIM
     Indication: Neuroblastoma
     Dosage: 65 ?G, QD
     Dates: start: 20241005, end: 20241018
  6. FILGRASTIM [Concomitant]
     Active Substance: FILGRASTIM
     Dosage: 65 ?G, QD
     Dates: start: 20241206, end: 20241208
  7. TECELEUKIN [Concomitant]
     Active Substance: TECELEUKIN
     Indication: Neuroblastoma
     Route: 041
     Dates: start: 20241105, end: 20241108
  8. TECELEUKIN [Concomitant]
     Active Substance: TECELEUKIN
     Route: 041
     Dates: start: 20241112, end: 20241115
  9. ACETAMINOPHEN [Concomitant]
     Active Substance: ACETAMINOPHEN
     Indication: Prophylaxis
     Dosage: 800 MG, QD
     Route: 041
     Dates: start: 20241008, end: 20241011
  10. HYDROXYZINE HYDROCHLORIDE [Concomitant]
     Active Substance: HYDROXYZINE HYDROCHLORIDE
     Indication: Prophylaxis
     Dosage: 50.0 MG, QD
     Route: 041
     Dates: start: 20241008, end: 20241011
  11. HYDROXYZINE HYDROCHLORIDE [Concomitant]
     Active Substance: HYDROXYZINE HYDROCHLORIDE
     Dosage: 50.0 MG, QD
     Route: 041
     Dates: start: 20241105, end: 20241109
  12. HYDROXYZINE HYDROCHLORIDE [Concomitant]
     Active Substance: HYDROXYZINE HYDROCHLORIDE
     Dosage: 50.0 MG, QD
     Route: 041
     Dates: start: 20241112, end: 20241116
  13. GRANISETRON [Concomitant]
     Active Substance: GRANISETRON
     Indication: Prophylaxis
     Dosage: 1.2 MG, QD
     Dates: start: 20241008, end: 20241011
  14. GRANISETRON [Concomitant]
     Active Substance: GRANISETRON
     Dosage: 1.0 MG, QD
     Dates: start: 20241112, end: 20241115
  15. FUROSEMIDE [Concomitant]
     Active Substance: FUROSEMIDE
     Indication: Urine output decreased
     Dosage: 8 MG, QD
     Dates: start: 20241010, end: 20241011
  16. DALTEPARIN SODIUM [Concomitant]
     Active Substance: DALTEPARIN SODIUM
     Indication: Prophylaxis
     Dosage: 1000 IU, QD
     Route: 041
     Dates: start: 20241008, end: 20241014
  17. DALTEPARIN SODIUM [Concomitant]
     Active Substance: DALTEPARIN SODIUM
     Dosage: 1000 IU, QD
     Route: 041
     Dates: start: 20241112, end: 20241118
  18. SULFAMETHOXAZOLE\TRIMETHOPRIM [Concomitant]
     Active Substance: SULFAMETHOXAZOLE\TRIMETHOPRIM
     Indication: Infection prophylaxis
     Dosage: 0.8 GRAM, QD
     Dates: start: 20240115, end: 20250530
  19. FLUCONAZOLE [Concomitant]
     Active Substance: FLUCONAZOLE
     Indication: Fungal infection
     Dosage: 40 MG, QD
     Dates: start: 20240115, end: 20240905
  20. FLUCONAZOLE [Concomitant]
     Active Substance: FLUCONAZOLE
     Dosage: 40 MG, QD
     Dates: start: 20240906, end: 20241010
  21. VENILON [Concomitant]
     Active Substance: HUMAN IMMUNOGLOBULIN G
     Indication: IIIrd nerve disorder
     Dosage: 5 GRAM, QD
     Route: 041
     Dates: start: 20241214, end: 20241218
  22. VENILON [Concomitant]
     Active Substance: HUMAN IMMUNOGLOBULIN G
     Indication: Bladder disorder
  23. VENILON [Concomitant]
     Active Substance: HUMAN IMMUNOGLOBULIN G
     Indication: Anorectal disorder
  24. SOLU-MEDROL [Concomitant]
     Active Substance: METHYLPREDNISOLONE SODIUM SUCCINATE
     Indication: IIIrd nerve disorder
     Route: 041
     Dates: start: 20241219, end: 20241221
  25. SOLU-MEDROL [Concomitant]
     Active Substance: METHYLPREDNISOLONE SODIUM SUCCINATE
     Indication: Bladder disorder
     Route: 041
     Dates: start: 20241226, end: 20241228
  26. SOLU-MEDROL [Concomitant]
     Active Substance: METHYLPREDNISOLONE SODIUM SUCCINATE
     Indication: Anorectal disorder

REACTIONS (10)
  - Eyelid ptosis [Recovered/Resolved]
  - IIIrd nerve disorder [Recovered/Resolved]
  - Bladder disorder [Recovered/Resolved]
  - Anorectal disorder [Recovered/Resolved]
  - Urine output decreased [Recovered/Resolved]
  - Pyrexia [Recovered/Resolved]
  - Hypotension [Recovered/Resolved]
  - Anaemia [Recovered/Resolved]
  - Platelet count decreased [Recovered/Resolved]
  - Tremor [Recovered/Resolved]

NARRATIVE: CASE EVENT DATE: 20241009
